FAERS Safety Report 8872573 (Version 2)
Quarter: 2012Q4

REPORT INFORMATION
  Report Type: Report from Study
  Country: US (occurrence: US)
  Receive Date: 20121030
  Receipt Date: 20121115
  Transmission Date: 20130627
  Serious: Yes (Hospitalization)
  Sender: FDA-Public Use
  Company Number: US-ROCHE-1146149

PATIENT
  Age: 67 Year
  Sex: Female
  Weight: 62.2 kg

DRUGS (2)
  1. BEVACIZUMAB [Suspect]
     Indication: OVARIAN CANCER
     Route: 042
     Dates: start: 20121002
  2. EVEROLIMUS [Suspect]
     Indication: OVARIAN CANCER
     Route: 048
     Dates: start: 20121002, end: 20121015

REACTIONS (2)
  - Intestinal perforation [Unknown]
  - Abscess intestinal [Unknown]
